FAERS Safety Report 24723930 (Version 2)
Quarter: 2025Q1

REPORT INFORMATION
  Report Type: Spontaneous
  Country: JP (occurrence: JP)
  Receive Date: 20241211
  Receipt Date: 20250123
  Transmission Date: 20250409
  Serious: Yes (Disabling)
  Sender: EISAI
  Company Number: JP-Eisai-202309321_LEN-EC_P_1

PATIENT
  Age: 64 Year
  Sex: Female

DRUGS (4)
  1. LENVIMA [Suspect]
     Active Substance: LENVATINIB
     Indication: Endometrial cancer
     Route: 048
  2. LENVIMA [Suspect]
     Active Substance: LENVATINIB
     Route: 048
  3. KEYTRUDA [Suspect]
     Active Substance: PEMBROLIZUMAB
     Indication: Endometrial cancer
     Route: 041
  4. KEYTRUDA [Suspect]
     Active Substance: PEMBROLIZUMAB
     Dosage: DOSE UNKNOWN
     Route: 041
     Dates: end: 202412

REACTIONS (3)
  - Hypopituitarism [Recovered/Resolved with Sequelae]
  - Hypothyroidism [Recovered/Resolved with Sequelae]
  - Eosinophil count increased [Recovered/Resolved]
